FAERS Safety Report 7513219-8 (Version None)
Quarter: 2011Q2

REPORT INFORMATION
  Report Type: 
  Country: None (occurrence: None)
  Receive Date: 20110531
  Receipt Date: 20110503
  Transmission Date: 20111010
  Serious: Yes (Hospitalization, Other)
  Sender: FDA-Public Use
  Company Number: US-BAYER-201039665NA

PATIENT
  Age: 48 Year
  Sex: Female
  Weight: 66 kg

DRUGS (8)
  1. CALCIUM +VIT D [Concomitant]
     Dosage: 500 MG, BID
  2. GLUCOSAMINE [Concomitant]
  3. ADVIL LIQUI-GELS [Concomitant]
     Indication: PAIN
     Dosage: UNK UNK, PRN
  4. DIGOXIN [Concomitant]
     Dosage: UNK
     Dates: start: 20081118, end: 20081202
  5. YASMIN [Suspect]
     Indication: CONTRACEPTION
     Route: 048
     Dates: start: 20000501, end: 20081101
  6. TOPROL-XL [Concomitant]
  7. YASMIN [Suspect]
     Indication: MENSTRUATION IRREGULAR
  8. PROPRANOLOL [Concomitant]

REACTIONS (3)
  - ARRHYTHMIA SUPRAVENTRICULAR [None]
  - PULMONARY EMBOLISM [None]
  - CARDIAC ABLATION [None]
